FAERS Safety Report 7988475-2 (Version None)
Quarter: 2011Q4

REPORT INFORMATION
  Report Type: 
  Country: None (occurrence: None)
  Receive Date: 20111216
  Receipt Date: 20111212
  Transmission Date: 20120403
  Serious: Yes (Other)
  Sender: FDA-Public Use
  Company Number: US-MERCK-1112USA01591

PATIENT
  Sex: Female

DRUGS (1)
  1. ZETIA [Suspect]
     Indication: BLOOD CHOLESTEROL INCREASED
     Route: 048
     Dates: start: 20111119, end: 20111124

REACTIONS (5)
  - RASH [None]
  - RASH ERYTHEMATOUS [None]
  - SOMNOLENCE [None]
  - RASH PRURITIC [None]
  - PRURITUS [None]
